FAERS Safety Report 11272082 (Version 2)
Quarter: 2015Q3

REPORT INFORMATION
  Report Type: Spontaneous
  Country: NL (occurrence: None)
  Receive Date: 20150713
  Receipt Date: 20150727
  Transmission Date: 20151125
  Serious: Yes (Other)
  Sender: FDA-Public Use
  Company Number: VIT-2015-01764

PATIENT
  Sex: Female

DRUGS (2)
  1. VELPHORO [Suspect]
     Active Substance: FERRIC OXYHYDROXIDE
     Indication: HYPERPHOSPHATAEMIA
     Route: 048
     Dates: end: 201505
  2. FUROSEMIDE (FUROSEMIDE) (FUROSEMIDE) [Suspect]
     Active Substance: FUROSEMIDE
     Indication: PRODUCT USED FOR UNKNOWN INDICATION

REACTIONS (2)
  - Dermatitis bullous [None]
  - Dermatitis allergic [None]
